FAERS Safety Report 7362364-9 (Version None)
Quarter: 2011Q1

REPORT INFORMATION
  Report Type: 
  Country: None (occurrence: None)
  Receive Date: 20110318
  Receipt Date: 20110315
  Transmission Date: 20110831
  Serious: Yes (Other)
  Sender: FDA-Public Use
  Company Number: GB-CEPHALON-2011001126

PATIENT
  Age: 3 Year
  Sex: Female

DRUGS (2)
  1. ERYTHROMYCIN (MANUFACTURER UNKNOWN) [Suspect]
  2. FENTANYL CITRATE [Suspect]

REACTIONS (2)
  - WHEEZING [None]
  - DRUG HYPERSENSITIVITY [None]
